FAERS Safety Report 8041950-7 (Version None)
Quarter: 2012Q1

REPORT INFORMATION
  Report Type: 
  Country: None (occurrence: None)
  Receive Date: 20120112
  Receipt Date: 20120105
  Transmission Date: 20120608
  Serious: Yes (Hospitalization)
  Sender: FDA-Public Use
  Company Number: PHEH2011US08504

PATIENT
  Sex: Female
  Weight: 108.39 kg

DRUGS (3)
  1. EXJADE [Suspect]
     Dosage: 2000 MG, QD
     Route: 048
  2. EXJADE [Suspect]
     Dosage: 1000 MG, QD
     Route: 048
  3. EXJADE [Suspect]
     Dosage: 2000 MG, QD
     Route: 048

REACTIONS (3)
  - RENAL FAILURE CHRONIC [None]
  - HYPOTENSION [None]
  - DIARRHOEA [None]
